FAERS Safety Report 10189244 (Version 1)
Quarter: 2014Q2

REPORT INFORMATION
  Report Type: Spontaneous
  Country: DE (occurrence: DE)
  Receive Date: 20140522
  Receipt Date: 20140522
  Transmission Date: 20141212
  Serious: Yes (Other)
  Sender: FDA-Public Use
  Company Number: GXKR2014DE001966

PATIENT
  Sex: 0

DRUGS (2)
  1. QUETIAPINE [Suspect]
     Indication: SUICIDAL IDEATION
     Dosage: UNKNOWN SUICIDAL DOSAGE
     Route: 064
     Dates: start: 20130719, end: 20130719
  2. QUETIAPINE [Suspect]
     Indication: SCHIZOPHRENIA, PARANOID TYPE
     Dosage: 300 MG/D; EXACT TRANSPLACENTAL EXPOSURE TIME UNKNOWN
     Route: 064

REACTIONS (6)
  - Low birth weight baby [Recovering/Resolving]
  - Neonatal respiratory distress syndrome [Recovered/Resolved]
  - Hypotonia neonatal [Recovered/Resolved]
  - Feeding disorder neonatal [Recovered/Resolved]
  - Temperature regulation disorder [Recovered/Resolved]
  - Anaemia neonatal [Recovered/Resolved]
